FAERS Safety Report 7739401-2 (Version None)
Quarter: 2011Q3

REPORT INFORMATION
  Report Type: 
  Country: None (occurrence: None)
  Receive Date: 20110909
  Receipt Date: 20110826
  Transmission Date: 20111222
  Serious: Yes (Other)
  Sender: FDA-Public Use
  Company Number: GB-RANBAXY-2011R1-43801

PATIENT
  Sex: Male

DRUGS (1)
  1. ISOTRETINOIN [Suspect]
     Indication: PRODUCT USED FOR UNKNOWN INDICATION
     Dosage: 30MG, QD
     Route: 048

REACTIONS (4)
  - TENDERNESS [None]
  - ERYTHEMA [None]
  - BLOOD CREATINE PHOSPHOKINASE [None]
  - SWELLING [None]
